FAERS Safety Report 22271512 (Version 1)
Quarter: 2023Q2

REPORT INFORMATION
  Report Type: Report from Study
  Country: US (occurrence: US)
  Receive Date: 20230501
  Receipt Date: 20230501
  Transmission Date: 20230721
  Serious: Yes (Hospitalization, Other)
  Sender: FDA-Public Use
  Company Number: US-ABBVIE-4316088

PATIENT
  Age: 32 Year
  Sex: Male
  Weight: 104 kg

DRUGS (7)
  1. HUMIRA [Suspect]
     Active Substance: ADALIMUMAB
     Indication: Colitis ulcerative
     Dosage: 40 MG, CITRATE FREE
     Route: 058
     Dates: start: 20221116
  2. HUMIRA [Suspect]
     Active Substance: ADALIMUMAB
     Route: 058
     Dates: start: 20220311, end: 2023
  3. HUMIRA [Suspect]
     Active Substance: ADALIMUMAB
     Dosage: CITRATE FREE
     Route: 058
  4. BUDESONIDE [Concomitant]
     Active Substance: BUDESONIDE
     Indication: Product used for unknown indication
     Route: 048
     Dates: start: 20230202, end: 20230220
  5. XARELTO [Concomitant]
     Active Substance: RIVAROXABAN
     Indication: Product used for unknown indication
  6. PREDNISONE [Concomitant]
     Active Substance: PREDNISONE
     Indication: Product used for unknown indication
     Route: 048
     Dates: start: 20230220, end: 20230419
  7. Mesalamine/lialda [Concomitant]
     Indication: Product used for unknown indication
     Route: 048

REACTIONS (3)
  - Deep vein thrombosis [Recovering/Resolving]
  - Deep vein thrombosis [Recovered/Resolved]
  - Postoperative thrombosis [Not Recovered/Not Resolved]

NARRATIVE: CASE EVENT DATE: 20230207
